FAERS Safety Report 18889511 (Version 2)
Quarter: 2021Q1

REPORT INFORMATION
  Report Type: Spontaneous
  Country: US (occurrence: US)
  Receive Date: 20210213
  Receipt Date: 20210301
  Transmission Date: 20210420
  Serious: Yes (Hospitalization)
  Sender: FDA-Public Use
  Company Number: US-TEVA-2021-US-1878627

PATIENT
  Sex: Female

DRUGS (2)
  1. CYCLOSPORINE ORAL SOLUTION [Suspect]
     Active Substance: CYCLOSPORINE
     Route: 048
  2. CYCLOSPORINE ORAL SOLUTION [Suspect]
     Active Substance: CYCLOSPORINE

REACTIONS (1)
  - COVID-19 [Not Recovered/Not Resolved]
